FAERS Safety Report 5623424-3 (Version None)
Quarter: 2008Q1

REPORT INFORMATION
  Report Type: 
  Country: None (occurrence: None)
  Receive Date: 20080212
  Receipt Date: 20080131
  Transmission Date: 20080703
  Serious: Yes (Hospitalization)
  Sender: FDA-Public Use
  Company Number: JP-PFIZER INC-2007095874

PATIENT
  Sex: Female
  Weight: 54 kg

DRUGS (10)
  1. VIBRAMYCIN [Suspect]
     Indication: ROSACEA
     Route: 048
     Dates: start: 20070818, end: 20070904
  2. LOXONIN [Suspect]
     Route: 048
     Dates: start: 20070901, end: 20070903
  3. CLARITHROMYCIN [Suspect]
     Indication: MYCOBACTERIUM AVIUM COMPLEX INFECTION
     Route: 048
     Dates: start: 20070828, end: 20070901
  4. EBASTEL [Suspect]
     Indication: ROSACEA
     Route: 048
     Dates: start: 20070811, end: 20070904
  5. TEPRENONE [Suspect]
     Indication: ROSACEA
     Route: 048
     Dates: start: 20070818, end: 20070904
  6. THYREOID [Suspect]
     Indication: HYPOTHYROIDISM
     Route: 048
  7. VALSARTAN [Suspect]
     Route: 048
     Dates: start: 20070101, end: 20070904
  8. SIMVASTATIN [Suspect]
     Route: 048
     Dates: start: 20050101, end: 20070904
  9. TAMOXIFEN CITRATE [Suspect]
     Route: 048
     Dates: start: 20050101, end: 20070904
  10. EVAMYL [Suspect]
     Route: 048

REACTIONS (1)
  - STEVENS-JOHNSON SYNDROME [None]
